FAERS Safety Report 9399719 (Version 2)
Quarter: 2013Q3

REPORT INFORMATION
  Report Type: Spontaneous
  Country: DE (occurrence: DE)
  Receive Date: 20130710
  Receipt Date: 20130815
  Transmission Date: 20140515
  Serious: Yes (Hospitalization)
  Sender: FDA-Public Use
  Company Number: ACO_37151_2013

PATIENT
  Age: 67 Year
  Sex: Male

DRUGS (8)
  1. FAMPYRA [Suspect]
     Indication: PARAPARESIS
     Route: 048
     Dates: start: 20120131, end: 20130228
  2. RAMIPRIL (RAMIPRIL) [Concomitant]
  3. LERCANIDIPINE (LERCANIDIPINE HYDROCHLORIDE) [Concomitant]
  4. ACETYLSALICYLIC ACID (ACETYLSALICYLIC ACID) [Concomitant]
  5. METOPROLOL (METOPROLOL TARTRATE) [Concomitant]
  6. TAMSULOSIN (TAMSULOSIN HYDROCHLORIDE) [Concomitant]
  7. TOVIAZ (FESOTERODINE FUMARATE) [Concomitant]
  8. TORASEMIDE (TORASEMIDE SODIUM) [Concomitant]

REACTIONS (4)
  - Trigeminal neuralgia [None]
  - Gastritis [None]
  - Uhthoff^s phenomenon [None]
  - Escherichia urinary tract infection [None]
